FAERS Safety Report 19595726 (Version 1)
Quarter: 2021Q3

REPORT INFORMATION
  Report Type: Spontaneous
  Country: FR (occurrence: FR)
  Receive Date: 20210723
  Receipt Date: 20210723
  Transmission Date: 20211014
  Serious: Yes (Hospitalization)
  Sender: FDA-Public Use
  Company Number: FR-ETHYPHARM-2021001069

PATIENT
  Age: 32 Year
  Sex: Male

DRUGS (3)
  1. HEROIN [Suspect]
     Active Substance: DIAMORPHINE
     Dosage: NON RENSEIGN?E
     Route: 065
  2. BUPRENORPHINE. [Suspect]
     Active Substance: BUPRENORPHINE
     Route: 042
     Dates: start: 2018
  3. TABAC (POUDRE DE) [Suspect]
     Active Substance: TOBACCO LEAF
     Dosage: 16 PA
     Route: 055

REACTIONS (17)
  - Coagulopathy [Recovering/Resolving]
  - Malnutrition [Recovering/Resolving]
  - Lactic acidosis [Recovering/Resolving]
  - Mitral valve incompetence [Recovering/Resolving]
  - Lung disorder [Recovering/Resolving]
  - Cell death [Recovering/Resolving]
  - Thrombocytopenia [Recovering/Resolving]
  - Generalised oedema [Recovering/Resolving]
  - Hypotension [Unknown]
  - Drug abuse [Not Recovered/Not Resolved]
  - Abscess limb [Recovering/Resolving]
  - Anaemia folate deficiency [Recovering/Resolving]
  - Hypovitaminosis [Recovering/Resolving]
  - Staphylococcal bacteraemia [Recovering/Resolving]
  - Hypoalbuminaemia [Recovering/Resolving]
  - Cardiomyopathy [Not Recovered/Not Resolved]
  - Intentional product use issue [Unknown]

NARRATIVE: CASE EVENT DATE: 20200321
